FAERS Safety Report 5023960-7 (Version None)
Quarter: 2006Q2

REPORT INFORMATION
  Report Type: 
  Country: None (occurrence: None)
  Receive Date: 20060607
  Receipt Date: 20060525
  Transmission Date: 20061013
  Serious: Yes (Death, Hospitalization, Other)
  Sender: FDA-Public Use
  Company Number: 2006US001091

PATIENT
  Age: 72 Year
  Sex: Female

DRUGS (1)
  1. PROGRAF [Suspect]
     Indication: PROPHYLAXIS AGAINST TRANSPLANT REJECTION
     Dosage: ORAL
     Route: 048
     Dates: start: 20060512, end: 20060512

REACTIONS (12)
  - ACCIDENTAL OVERDOSE [None]
  - CARDIAC ARREST [None]
  - CYTOMEGALOVIRUS INFECTION [None]
  - DRUG PRESCRIBING ERROR [None]
  - DRUG TOXICITY [None]
  - HAEMORRHAGE [None]
  - INCORRECT DOSE ADMINISTERED [None]
  - LUNG INFECTION [None]
  - PLEURAL DISORDER [None]
  - PNEUMONIA [None]
  - PULMONARY EMBOLISM [None]
  - RESPIRATORY ARREST [None]
